FAERS Safety Report 5460504-X (Version None)
Quarter: 2007Q3

REPORT INFORMATION
  Report Type: 
  Country: None (occurrence: None)
  Receive Date: 20070919
  Receipt Date: 20070716
  Transmission Date: 20080115
  Serious: Yes (Other)
  Sender: FDA-Public Use
  Company Number: US-ASTRAZENECA-2007UW16813

PATIENT
  Age: 720 Month
  Sex: Male
  Weight: 70 kg

DRUGS (4)
  1. SEROQUEL [Suspect]
     Indication: CONVULSION
     Dosage: 25 MG, 75 MG
     Dates: end: 20051201
  2. ABILIFY [Concomitant]
     Dates: start: 20051101
  3. TRIAZOLAM [Concomitant]
  4. ARICEPT [Concomitant]

REACTIONS (3)
  - CONVULSION [None]
  - DIABETES MELLITUS [None]
  - PANCREATITIS [None]
